FAERS Safety Report 7884846-3 (Version None)
Quarter: 2011Q4

REPORT INFORMATION
  Report Type: 
  Country: None (occurrence: None)
  Receive Date: 20111102
  Receipt Date: 20111025
  Transmission Date: 20120403
  Serious: Yes (Hospitalization, Other)
  Sender: FDA-Public Use
  Company Number: PHHY2011BR95628

PATIENT
  Sex: Male

DRUGS (1)
  1. DIOVAN [Suspect]
     Dosage: 160 MG, UNK

REACTIONS (3)
  - DRUG INTOLERANCE [None]
  - PULMONARY OEDEMA [None]
  - FLUID RETENTION [None]
